FAERS Safety Report 18430530 (Version 1)
Quarter: 2020Q4

REPORT INFORMATION
  Report Type: Spontaneous
  Country: US (occurrence: US)
  Receive Date: 20201027
  Receipt Date: 20201027
  Transmission Date: 20210114
  Serious: No
  Sender: FDA-Public Use
  Company Number: US-AUROBINDO-AUR-APL-2020-050930

PATIENT
  Age: 71 Year
  Sex: Female
  Weight: 71.6 kg

DRUGS (2)
  1. LEVOFLOXACIN. [Concomitant]
     Active Substance: LEVOFLOXACIN
     Indication: PRODUCT USED FOR UNKNOWN INDICATION
     Dosage: UNK
     Route: 065
  2. AZITHROMYCIN 250 MG TABLETS USP [Suspect]
     Active Substance: AZITHROMYCIN
     Indication: LASER THERAPY
     Dosage: 2 DOSAGE FORM, DAILY BEFORE SURGERY AND 01 TABLET DAILY FOR 04 DAYS
     Route: 065
     Dates: start: 20200929

REACTIONS (1)
  - Abdominal pain [Not Recovered/Not Resolved]

NARRATIVE: CASE EVENT DATE: 20200929
